FAERS Safety Report 5124317-0 (Version None)
Quarter: 2006Q4

REPORT INFORMATION
  Report Type: 
  Country: None (occurrence: None)
  Receive Date: 20061010
  Receipt Date: 20061004
  Transmission Date: 20070319
  Serious: Yes (Hospitalization)
  Sender: FDA-Public Use
  Company Number: SE-BOEHRINGER INGELHEIM PHARMACEUTICALS, INC.-2006-SW-00403SW

PATIENT
  Sex: Female

DRUGS (7)
  1. SIFROL TAB. 0.18 MG [Suspect]
     Indication: RESTLESS LEGS SYNDROME
     Dates: end: 20060908
  2. NACL [Concomitant]
  3. SPIRONOLAKTON [Concomitant]
  4. METOPROLOL SUCCINATE [Concomitant]
  5. PLENDIL [Concomitant]
  6. ATACAND [Concomitant]
  7. STESOLID [Concomitant]

REACTIONS (3)
  - BLOOD PRESSURE FLUCTUATION [None]
  - RENAL IMPAIRMENT [None]
  - VISUAL ACUITY REDUCED [None]
